FAERS Safety Report 13258021 (Version 1)
Quarter: 2017Q1

REPORT INFORMATION
  Report Type: Other
  Country: AU (occurrence: AU)
  Receive Date: 20170221
  Receipt Date: 20170221
  Transmission Date: 20170428
  Serious: Yes (Hospitalization, Other)
  Sender: FDA-Public Use
  Company Number: AU-ACIC FINE CHEMICALS INC-1063406

PATIENT
  Age: 67 Year
  Sex: Male

DRUGS (2)
  1. TRANEXAMIC ACID. [Suspect]
     Active Substance: TRANEXAMIC ACID
     Indication: FIBRINOLYSIS
     Route: 042
  2. TRANEXAMIC ACID. [Suspect]
     Active Substance: TRANEXAMIC ACID
     Route: 041

REACTIONS (1)
  - Epilepsy [Recovered/Resolved]
